FAERS Safety Report 13657754 (Version 7)
Quarter: 2020Q4

REPORT INFORMATION
  Report Type: Spontaneous
  Country: US (occurrence: US)
  Receive Date: 20170615
  Receipt Date: 20201210
  Transmission Date: 20210113
  Serious: Yes (Hospitalization, Other)
  Sender: FDA-Public Use
  Company Number: US-AMGEN-USASP2017087761

PATIENT
  Age: 65 Year
  Sex: Female
  Weight: 78.92 kg

DRUGS (80)
  1. TAMOXIFEN CITRATE. [Concomitant]
     Active Substance: TAMOXIFEN CITRATE
     Dosage: UNK UNK, BID (1 TABLET)
     Dates: start: 201112
  2. VITAMINE D [Concomitant]
     Active Substance: CHOLECALCIFEROL
     Dosage: 50000 INTERNATIONAL UNIT, QWK
  3. XELODA [Concomitant]
     Active Substance: CAPECITABINE
  4. ROXICODONE [Concomitant]
     Active Substance: OXYCODONE HYDROCHLORIDE
  5. LIPITOR [Concomitant]
     Active Substance: ATORVASTATIN CALCIUM
  6. ROBAXIN [Concomitant]
     Active Substance: METHOCARBAMOL
  7. ULTRAM [Concomitant]
     Active Substance: TRAMADOL HYDROCHLORIDE
  8. MVI [VITAMINS NOS] [Concomitant]
     Dosage: UNK
  9. PRANDIN [Concomitant]
     Active Substance: REPAGLINIDE
     Dosage: 2 MILLIGRAM
  10. ZANAFLEX [Concomitant]
     Active Substance: TIZANIDINE HYDROCHLORIDE
     Dosage: 2 MILLIGRAM, TID
  11. LEVEMIR [Concomitant]
     Active Substance: INSULIN DETEMIR
     Dosage: 100 MICROGRAM
  12. CALCIUM + D3 [CALCIUM;COLECALCIFEROL] [Concomitant]
     Dosage: UNK UNK, QD
     Route: 048
  13. PRILOSEC [Concomitant]
     Active Substance: OMEPRAZOLE MAGNESIUM
     Dosage: 20 MILLIGRAM, QD
     Route: 048
  14. LEXAPRO [Concomitant]
     Active Substance: ESCITALOPRAM OXALATE
     Dosage: 10 MILLIGRAM
  15. HUMALOG [Concomitant]
     Active Substance: INSULIN LISPRO
  16. GLUCOSE [Concomitant]
     Active Substance: DEXTROSE
  17. VOLTAREN [DICLOFENAC] [Concomitant]
     Active Substance: DICLOFENAC SODIUM
     Dosage: UNK MILLIGRAM
  18. MIRALAX [Concomitant]
     Active Substance: POLYETHYLENE GLYCOL 3350
  19. NOVOLOG [Concomitant]
     Active Substance: INSULIN ASPART
  20. TRAMADOL HCL [Concomitant]
     Active Substance: TRAMADOL HYDROCHLORIDE
     Indication: PAIN
     Dosage: UNK (1-2 TABLETS, EVERY SIX HOURS)
     Route: 048
  21. SYNTHROID [Concomitant]
     Active Substance: LEVOTHYROXINE SODIUM
     Dosage: 25 MICROGRAM
  22. IBUPROFEN. [Concomitant]
     Active Substance: IBUPROFEN
  23. COLACE [Concomitant]
     Active Substance: DOCUSATE SODIUM
     Dosage: 100 MILLIGRAM, BID
     Route: 048
  24. FLEXERIL [Concomitant]
     Active Substance: CYCLOBENZAPRINE HYDROCHLORIDE
  25. TRESIBA [Concomitant]
     Active Substance: INSULIN DEGLUDEC
  26. HEPARIN [Concomitant]
     Active Substance: HEPARIN SODIUM
  27. NORCO [Concomitant]
     Active Substance: ACETAMINOPHEN\HYDROCODONE BITARTRATE
  28. NYSTATIN. [Concomitant]
     Active Substance: NYSTATIN
     Dosage: UNK
  29. NAPROXEN. [Concomitant]
     Active Substance: NAPROXEN
  30. EVEROLIMUS. [Concomitant]
     Active Substance: EVEROLIMUS
  31. JANUVIA [Concomitant]
     Active Substance: SITAGLIPTIN PHOSPHATE
     Dosage: 50 MILLIGRAM, TA
  32. CIPRO [Concomitant]
     Active Substance: CIPROFLOXACIN HYDROCHLORIDE
     Dosage: 500 MILLIGRAM
  33. SENOKOT [Concomitant]
     Active Substance: SENNOSIDES
     Dosage: 8.6 MILLIGRAM, BID
  34. FLONASE [Concomitant]
     Active Substance: FLUTICASONE PROPIONATE
  35. DILAUDID [Concomitant]
     Active Substance: HYDROMORPHONE HYDROCHLORIDE
  36. LIDODERM [Concomitant]
     Active Substance: LIDOCAINE
     Dosage: UNK
  37. AVASTIN [Concomitant]
     Active Substance: BEVACIZUMAB
  38. VICODIN [Concomitant]
     Active Substance: ACETAMINOPHEN\HYDROCODONE BITARTRATE
  39. XGEVA [Suspect]
     Active Substance: DENOSUMAB
     Indication: METASTASES TO BONE
     Dosage: 120 MILLIGRAM PER 1.7 MILLILITRE, QMO
     Route: 058
     Dates: start: 2012, end: 2015
  40. AMARYL [Concomitant]
     Active Substance: GLIMEPIRIDE
     Dosage: 4 MILLIGRAM, QD
     Route: 048
  41. NEURONTIN [Concomitant]
     Active Substance: GABAPENTIN
     Dosage: 300 MILLIGRAM, TID
     Route: 048
  42. ULTRAME [Concomitant]
     Active Substance: TRAMADOL HYDROCHLORIDE
  43. TYLENOL [Concomitant]
     Active Substance: ACETAMINOPHEN
  44. MORPHINE [Concomitant]
     Active Substance: MORPHINE
     Indication: PAIN
     Dosage: 15 MILLIGRAM
  45. FLEXERIL [Concomitant]
     Active Substance: CYCLOBENZAPRINE HYDROCHLORIDE
  46. COMPAZINE [Concomitant]
     Active Substance: PROCHLORPERAZINE MALEATE
  47. METFORMIN HCL [Concomitant]
     Active Substance: METFORMIN HYDROCHLORIDE
     Dosage: UNK UNK, BID (2 PILLS)
  48. MEDROL [Concomitant]
     Active Substance: METHYLPREDNISOLONE
     Dosage: UNK
  49. PERIDEX [CHLORHEXIDINE GLUCONATE] [Concomitant]
     Dosage: UNK
  50. ARTIFICIAL TEARS [HYPROMELLOSE] [Concomitant]
     Dosage: UNK
  51. AUGMENTINE [AMOXICILLIN;CLAVULANIC ACID] [Concomitant]
     Active Substance: AMOXICILLIN\CLAVULANIC ACID
     Dosage: UNK MILLIGRAM, BID
     Route: 048
  52. GLUCAGON. [Concomitant]
     Active Substance: GLUCAGON
     Dosage: UNK
  53. FEMARA [Concomitant]
     Active Substance: LETROZOLE
  54. GLIMEPIRIDE. [Concomitant]
     Active Substance: GLIMEPIRIDE
  55. DULCOLAX (BISACODYL) [Concomitant]
     Active Substance: BISACODYL
  56. BACTROBAN [Concomitant]
     Active Substance: MUPIROCIN\MUPIROCIN CALCIUM
  57. ZOFRAN [Concomitant]
     Active Substance: ONDANSETRON HYDROCHLORIDE
  58. CALCIUM [Concomitant]
     Active Substance: CALCIUM
     Dosage: UNK
  59. AROMASIN [Concomitant]
     Active Substance: EXEMESTANE
     Dosage: UNK
  60. FASLODEX [Concomitant]
     Active Substance: FULVESTRANT
  61. ASPIRINE [Concomitant]
     Active Substance: ASPIRIN
  62. REVLIMID [Concomitant]
     Active Substance: LENALIDOMIDE
     Dosage: UNK
  63. ZYLOPRIM [Concomitant]
     Active Substance: ALLOPURINOL
     Dosage: 300 MILLIGRAM, QD
     Route: 048
  64. VIBRAMYCIN [Concomitant]
     Active Substance: DOXYCYCLINE
  65. FML FORTE [Concomitant]
     Active Substance: FLUOROMETHOLONE
     Dosage: UNK
     Route: 047
  66. MS CONTIN [Concomitant]
     Active Substance: MORPHINE SULFATE
     Indication: PAIN
     Dosage: 15 MILLIGRAM
  67. OMEPRAZOLE. [Concomitant]
     Active Substance: OMEPRAZOLE
     Dosage: 20 MILLIGRAM
  68. CYMBALTA [Concomitant]
     Active Substance: DULOXETINE HYDROCHLORIDE
  69. EC-NAPROSYN [Concomitant]
     Active Substance: NAPROXEN
  70. LOPROX [Concomitant]
     Active Substance: CICLOPIROX\CICLOPIROX OLAMINE
  71. SIMVASTATIN. [Concomitant]
     Active Substance: SIMVASTATIN
  72. HYDROQUINONE. [Concomitant]
     Active Substance: HYDROQUINONE
  73. VALTREX [Concomitant]
     Active Substance: VALACYCLOVIR HYDROCHLORIDE
     Dosage: 500 MILLIGRAM, QD
     Route: 048
  74. DEXTROSE. [Concomitant]
     Active Substance: DEXTROSE
  75. FISH OIL [Concomitant]
     Active Substance: FISH OIL
     Dosage: 1000 MILLIGRAM
     Route: 048
  76. ONDANSETRON [Concomitant]
     Active Substance: ONDANSETRON
     Dosage: 4 MILLIGRAM
  77. FLAREX [Concomitant]
     Active Substance: FLUOROMETHOLONE ACETATE
  78. INSULIN [Concomitant]
     Active Substance: INSULIN NOS
  79. DURAGESIC [Concomitant]
     Active Substance: FENTANYL
  80. THERMAZENE [Concomitant]
     Active Substance: SILVER SULFADIAZINE

REACTIONS (64)
  - Non-Hodgkin^s lymphoma [Unknown]
  - Diffuse large B-cell lymphoma [Unknown]
  - Spinal compression fracture [Unknown]
  - Back pain [Recovering/Resolving]
  - Lymphadenopathy [Unknown]
  - Spinal operation [Unknown]
  - Panic attack [Unknown]
  - Insomnia [Unknown]
  - Headache [Unknown]
  - Nausea [Unknown]
  - Bone loss [Unknown]
  - Loose tooth [Unknown]
  - Skin laceration [Unknown]
  - Neck pain [Unknown]
  - Fatigue [Unknown]
  - Gingivitis [Unknown]
  - Diabetic ketoacidosis [Unknown]
  - Ear pain [Unknown]
  - Constipation [Unknown]
  - Oral mucosal erythema [Unknown]
  - Dry eye [Unknown]
  - Osteomyelitis [Unknown]
  - Pathological fracture [Unknown]
  - Osteonecrosis of jaw [Not Recovered/Not Resolved]
  - Gingival bleeding [Unknown]
  - Spinal deformity [Unknown]
  - Asthenia [Unknown]
  - Breast cancer metastatic [Unknown]
  - Left ventricular failure [Unknown]
  - Spinal cord disorder [Unknown]
  - Tooth loss [Unknown]
  - Supraventricular tachycardia [Unknown]
  - Condition aggravated [Unknown]
  - Cardiomegaly [Unknown]
  - Periarthritis [Unknown]
  - Thyroiditis [Unknown]
  - Abdominal hernia repair [Unknown]
  - Vertigo [Unknown]
  - Vitamin D deficiency [Unknown]
  - Arthralgia [Unknown]
  - Oedema peripheral [Unknown]
  - Hot flush [Unknown]
  - Neuropathy peripheral [Unknown]
  - Quality of life decreased [Unknown]
  - Impaired healing [Unknown]
  - Dizziness [Unknown]
  - Cognitive disorder [Unknown]
  - Anxiety [Unknown]
  - Pain in extremity [Unknown]
  - Pulmonary arterial hypertension [Unknown]
  - Major depression [Unknown]
  - Ovarian cyst [Unknown]
  - Cataract nuclear [Unknown]
  - Gingival erosion [Unknown]
  - Hepatic steatosis [Unknown]
  - Weight decreased [Unknown]
  - Diverticulum intestinal [Unknown]
  - Nephrolithiasis [Unknown]
  - Thoracic vertebral fracture [Unknown]
  - Emotional distress [Unknown]
  - Road traffic accident [Unknown]
  - Gout [Unknown]
  - Respiratory disorder [Unknown]
  - Anaemia [Unknown]

NARRATIVE: CASE EVENT DATE: 20121012
